FAERS Safety Report 6337464-2 (Version None)
Quarter: 2009Q3

REPORT INFORMATION
  Report Type: 
  Country: None (occurrence: None)
  Receive Date: 20090902
  Receipt Date: 20090825
  Transmission Date: 20100115
  Serious: Yes (Death)
  Sender: FDA-Public Use
  Company Number: US-CUBIST-2009S1000346

PATIENT
  Sex: Male
  Weight: 60.8 kg

DRUGS (5)
  1. CUBICIN [Suspect]
     Indication: BACTERAEMIA
     Route: 042
  2. CUBICIN [Suspect]
     Route: 042
  3. CUBICIN [Suspect]
     Route: 042
  4. CUBICIN [Suspect]
     Route: 042
  5. VANCOMYCIN [Suspect]
     Indication: BACTERAEMIA

REACTIONS (3)
  - ANTIMICROBIAL SUSCEPTIBILITY TEST RESISTANT [None]
  - DRUG INEFFECTIVE [None]
  - MULTI-ORGAN FAILURE [None]
